FAERS Safety Report 19513794 (Version 3)
Quarter: 2023Q1

REPORT INFORMATION
  Report Type: Spontaneous
  Country: DE (occurrence: DE)
  Receive Date: 20210709
  Receipt Date: 20230221
  Transmission Date: 20230418
  Serious: Yes (Other)
  Sender: FDA-Public Use
  Company Number: DE-JNJFOC-20210114007

PATIENT
  Age: 8 Decade
  Sex: Male

DRUGS (6)
  1. PREDNISOLONE [Suspect]
     Active Substance: PREDNISOLONE
     Indication: Prostate cancer
     Dosage: 5 MILLIGRAM, START: ??-???-2021
     Route: 065
  2. PREDNISOLONE [Suspect]
     Active Substance: PREDNISOLONE
     Indication: Product used for unknown indication
     Dosage: 10 MILLIGRAM
     Route: 065
  3. TORSEMIDE [Interacting]
     Active Substance: TORSEMIDE
     Indication: Product used for unknown indication
     Dosage: HIGH DOSE
     Route: 065
  4. ZYTIGA [Interacting]
     Active Substance: ABIRATERONE ACETATE
     Indication: Prostate cancer
     Dosage: 1000 MILLIGRAM, QD
     Route: 048
  5. ZYTIGA [Interacting]
     Active Substance: ABIRATERONE ACETATE
     Dosage: 50 MILLIGRAM
     Route: 048
  6. ZYTIGA [Interacting]
     Active Substance: ABIRATERONE ACETATE
     Dosage: 500 MILLIGRAM
     Route: 048

REACTIONS (5)
  - Blood potassium increased [Recovered/Resolved]
  - Weight increased [Not Recovered/Not Resolved]
  - Prostatic specific antigen increased [Not Recovered/Not Resolved]
  - Transaminases increased [Recovered/Resolved]
  - Drug interaction [Unknown]

NARRATIVE: CASE EVENT DATE: 20201216
